FAERS Safety Report 18273899 (Version 2)
Quarter: 2020Q4

REPORT INFORMATION
  Report Type: Spontaneous
  Country: US (occurrence: US)
  Receive Date: 20200916
  Receipt Date: 20201002
  Transmission Date: 20210113
  Serious: Yes (Hospitalization)
  Sender: FDA-Public Use
  Company Number: US-BAYER-2020-200045

PATIENT

DRUGS (1)
  1. ADEMPAS [Suspect]
     Active Substance: RIOCIGUAT
     Indication: CARDIAC DISORDER
     Dosage: UNK UNK, TID

REACTIONS (2)
  - Hospitalisation [Recovered/Resolved]
  - Product availability issue [None]
